FAERS Safety Report 21440815 (Version 1)
Quarter: 2022Q4

REPORT INFORMATION
  Report Type: Report from Study
  Country: US (occurrence: US)
  Receive Date: 20221011
  Receipt Date: 20221011
  Transmission Date: 20230113
  Serious: Yes (Other)
  Sender: FDA-Public Use
  Company Number: US-BRISTOL-MYERS SQUIBB COMPANY-2022-114881

PATIENT
  Age: 59 Year
  Sex: Male
  Weight: 74.84 kg

DRUGS (1)
  1. POMALYST [Suspect]
     Active Substance: POMALIDOMIDE
     Indication: Plasma cell myeloma
     Dosage: DAILY, 21 DAYS, 7 DAYS OFF OF 28-DAY CYCLE
     Route: 048

REACTIONS (5)
  - Femur fracture [Unknown]
  - Rib fracture [Unknown]
  - Fracture [Unknown]
  - Spinal fracture [Unknown]
  - Plasma cell myeloma recurrent [Unknown]
